FAERS Safety Report 22090086 (Version 1)
Quarter: 2023Q1

REPORT INFORMATION
  Report Type: Spontaneous
  Country: US (occurrence: None)
  Receive Date: 20230313
  Receipt Date: 20230313
  Transmission Date: 20230417
  Serious: Yes (unspecified)
  Sender: FDA-Public Use
  Company Number: None

PATIENT
  Age: 41 Year
  Sex: Female
  Weight: 140.85 kg

DRUGS (2)
  1. CIMZIA [Suspect]
     Active Substance: CERTOLIZUMAB PEGOL
     Indication: Ankylosing spondylitis
     Dosage: OTHER FREQUENCY : 2 PENS/400MG;?
     Route: 058
     Dates: start: 20230310, end: 20230310
  2. Celebrex 100mg daily prn [Concomitant]

REACTIONS (5)
  - Urticaria [None]
  - Nasopharyngitis [None]
  - Pruritus [None]
  - Injection related reaction [None]
  - Chills [None]

NARRATIVE: CASE EVENT DATE: 20230310
